FAERS Safety Report 20332489 (Version 1)
Quarter: 2022Q1

REPORT INFORMATION
  Report Type: Spontaneous
  Country: IR (occurrence: IR)
  Receive Date: 20220113
  Receipt Date: 20220113
  Transmission Date: 20220423
  Serious: Yes (Death)
  Sender: FDA-Public Use
  Company Number: IR-NOVARTISPH-NVSC2022IR005094

PATIENT
  Age: 21 Year
  Sex: Male

DRUGS (3)
  1. CYCLOSPORINE [Suspect]
     Active Substance: CYCLOSPORINE
     Indication: Prophylaxis against graft versus host disease
     Dosage: 1.5 MG/KG, QD
     Route: 042
  2. CYCLOSPORINE [Suspect]
     Active Substance: CYCLOSPORINE
     Dosage: 3 MG/KG, QD
     Route: 042
  3. METHYLPREDNISOLONE [Suspect]
     Active Substance: METHYLPREDNISOLONE
     Indication: Prophylaxis against graft versus host disease
     Dosage: 1 MG/KG, QD
     Route: 065

REACTIONS (4)
  - Graft versus host disease in gastrointestinal tract [Fatal]
  - Acute graft versus host disease in skin [Fatal]
  - Acute graft versus host disease in liver [Fatal]
  - Chronic graft versus host disease [Fatal]
